FAERS Safety Report 6498380-9 (Version None)
Quarter: 2009Q4

REPORT INFORMATION
  Report Type: 
  Country: None (occurrence: None)
  Receive Date: 20091127
  Receipt Date: 20090217
  Transmission Date: 20100525
  Serious: Yes (Hospitalization, Other)
  Sender: FDA-Public Use
  Company Number: 284384

PATIENT
  Age: 15 Year
  Sex: Female

DRUGS (3)
  1. NOVOLOG [Suspect]
     Indication: TYPE 1 DIABETES MELLITUS
     Dosage: 17-20 UNITS, QD, SUBCUTAN.-PUMP
     Route: 058
  2. NOVOLOG [Suspect]
     Dosage: 90 - 140 UNITS, QD DURING HOSPITALIZATION, INTRAVENOUS
     Route: 042
     Dates: start: 20090201, end: 20090201
  3. NOVOLOG [Suspect]
     Dosage: QD AFTER HOSPITAL DISCHARGE, SUBCUTAN.-PUMP
     Route: 058

REACTIONS (2)
  - BLOOD GLUCOSE INCREASED [None]
  - DRUG SPECIFIC ANTIBODY PRESENT [None]
